FAERS Safety Report 4630855-7 (Version None)
Quarter: 2005Q2

REPORT INFORMATION
  Report Type: 
  Country: None (occurrence: None)
  Receive Date: 20050404
  Receipt Date: 20050404
  Transmission Date: 20051028
  Serious: Yes (Hospitalization)
  Sender: FDA-Public Use
  Company Number: None

PATIENT
  Age: 76 Year
  Sex: Female

DRUGS (10)
  1. METHOTREXATE [Suspect]
     Indication: BREAST CANCER
     Dosage: 40 MG/M2 IV DAY 1%0
     Route: 042
     Dates: start: 20041004, end: 20041215
  2. FLUOROURACIL [Suspect]
     Indication: BREAST CANCER
     Dosage: 600 MG/M2 IV D 1 + 8
     Route: 042
     Dates: start: 20041004, end: 20041215
  3. CYCLOPHOSPHAMIDE [Suspect]
     Dosage: 100 MG/M2 PO D 1-14
     Route: 048
  4. LEVOXYL [Concomitant]
  5. ZYPREXA [Concomitant]
  6. DEPAKOTE [Concomitant]
  7. PROTONIX [Concomitant]
  8. DITROPAN [Concomitant]
  9. ALBUTEROL [Concomitant]
  10. MULTI-VITAMINS [Concomitant]

REACTIONS (13)
  - ANAEMIA [None]
  - ASTHENIA [None]
  - BLOOD CREATININE INCREASED [None]
  - DIZZINESS [None]
  - DYSPNOEA [None]
  - HYPOTENSION [None]
  - HYPOVOLAEMIA [None]
  - LEUKOPENIA [None]
  - LUNG DISORDER [None]
  - MEDICATION ERROR [None]
  - NEUTROPENIA [None]
  - PLEURAL DISORDER [None]
  - URINARY TRACT INFECTION [None]
